FAERS Safety Report 8572422-9 (Version None)
Quarter: 2012Q3

REPORT INFORMATION
  Report Type: 
  Country: None (occurrence: None)
  Receive Date: 20120806
  Receipt Date: 20090707
  Transmission Date: 20120928
  Serious: Yes (Other)
  Sender: FDA-Public Use
  Company Number: DE-CELGENEUS-062-21880-12060642

PATIENT
  Age: 66 Year
  Sex: Female
  Weight: 60 kg

DRUGS (9)
  1. DARBEPOETIN [Concomitant]
     Route: 065
     Dates: start: 20090305
  2. REVLIMID [Suspect]
     Indication: MULTIPLE MYELOMA
     Route: 048
     Dates: start: 20090226, end: 20090603
  3. DEXAMETHASONE [Suspect]
     Route: 065
     Dates: start: 20090325
  4. DEXAMETHASONE [Suspect]
     Route: 065
     Dates: start: 20090422
  5. DEXAMETHASONE [Suspect]
     Indication: MULTIPLE MYELOMA
     Route: 065
     Dates: start: 20090226
  6. DEXAMETHASONE [Suspect]
     Route: 065
     Dates: start: 20090520, end: 20090603
  7. IBANDRONATE SODIUM [Concomitant]
     Route: 065
  8. DARBEPOETIN [Concomitant]
     Route: 065
     Dates: start: 20090409
  9. DARBEPOETIN [Concomitant]
     Route: 065
     Dates: start: 20090507

REACTIONS (7)
  - PSYCHOTIC DISORDER [None]
  - LEUKOPENIA [None]
  - GRANULOCYTOPENIA [None]
  - ANAEMIA [None]
  - DIARRHOEA [None]
  - NAUSEA [None]
  - SUICIDAL IDEATION [None]
